FAERS Safety Report 7814608-4 (Version None)
Quarter: 2011Q4

REPORT INFORMATION
  Report Type: 
  Country: None (occurrence: None)
  Receive Date: 20111013
  Receipt Date: 20111013
  Transmission Date: 20120403
  Serious: Yes (Disabling, Other)
  Sender: FDA-Public Use
  Company Number: None

PATIENT
  Sex: Female
  Weight: 88.905 kg

DRUGS (1)
  1. LOSARTAN POTASSIUM [Suspect]
     Indication: BLOOD PRESSURE INCREASED
     Dosage: 100 MGM O D O
     Route: 048
     Dates: start: 20110101, end: 20110601

REACTIONS (6)
  - VISION BLURRED [None]
  - COUGH [None]
  - OEDEMA [None]
  - BLOOD PRESSURE FLUCTUATION [None]
  - OEDEMA PERIPHERAL [None]
  - PRODUCT SUBSTITUTION ISSUE [None]
